FAERS Safety Report 4945087-2 (Version None)
Quarter: 2006Q1

REPORT INFORMATION
  Report Type: 
  Country: None (occurrence: None)
  Receive Date: 20060316
  Receipt Date: 20060308
  Transmission Date: 20060701
  Serious: Yes (Other)
  Sender: FDA-Public Use
  Company Number: PHBS2006JP03774

PATIENT
  Age: 36 Year
  Sex: Female

DRUGS (2)
  1. VOLTAREN [Suspect]
     Dosage: 70 MG/DAY
     Route: 048
  2. PREDNISOLONE [Suspect]
     Dosage: 20 MG/DAY
     Route: 048

REACTIONS (2)
  - LARGE INTESTINE PERFORATION [None]
  - SJOGREN'S SYNDROME [None]
